APPROVED DRUG PRODUCT: GANZYK-RTU
Active Ingredient: GANCICLOVIR
Strength: 500MG/250ML (2MG/ML)
Dosage Form/Route: SOLUTION;INTRAVENOUS
Application: N209347 | Product #001
Applicant: EXELA PHARMA SCIENCES LLC
Approved: Feb 17, 2017 | RLD: Yes | RS: No | Type: DISCN

PATENTS:
Patent 9486530 | Expires: Sep 2, 2034